FAERS Safety Report 13648378 (Version 1)
Quarter: 2017Q2

REPORT INFORMATION
  Report Type: Spontaneous
  Country: US (occurrence: US)
  Receive Date: 20170613
  Receipt Date: 20170613
  Transmission Date: 20170830
  Serious: Yes (Other)
  Sender: FDA-Public Use
  Company Number: US-SA-2017SA101551

PATIENT
  Age: 82 Year
  Sex: Male

DRUGS (3)
  1. ALLEGRA-D [Suspect]
     Active Substance: FEXOFENADINE\PSEUDOEPHEDRINE
     Indication: HEAD DISCOMFORT
     Route: 048
  2. ASPIRIN. [Concomitant]
     Active Substance: ASPIRIN
     Indication: HEART VALVE OPERATION
     Route: 065
  3. ALLEGRA-D [Suspect]
     Active Substance: FEXOFENADINE\PSEUDOEPHEDRINE
     Indication: MULTIPLE ALLERGIES
     Route: 048

REACTIONS (5)
  - Upper-airway cough syndrome [Recovering/Resolving]
  - Urine flow decreased [Unknown]
  - Urinary retention [Unknown]
  - Therapeutic response decreased [Unknown]
  - Nasal congestion [Recovering/Resolving]
